FAERS Safety Report 6409120-3 (Version None)
Quarter: 2009Q4

REPORT INFORMATION
  Report Type: 
  Country: None (occurrence: None)
  Receive Date: 20091021
  Receipt Date: 20090516
  Transmission Date: 20100525
  Serious: Yes (Hospitalization)
  Sender: FDA-Public Use
  Company Number: PHHO2009UA05375

PATIENT
  Age: 72 Year
  Sex: Male

DRUGS (7)
  1. DICLOFENAC SODIUM [Suspect]
     Indication: BACK PAIN
     Dosage: 75MG QD
     Route: 030
     Dates: start: 20090401, end: 20090401
  2. BLINDED FORADIL T28242+INHAL [Suspect]
     Indication: CHRONIC OBSTRUCTIVE PULMONARY DISEASE
     Dosage: DOUBLE BLIND TREATMENT PHASE
     Dates: start: 20081119
  3. BLINDED MOMETASONE FUROATE / FORMOTEROL MFF+INH [Suspect]
     Indication: CHRONIC OBSTRUCTIVE PULMONARY DISEASE
     Dosage: DOUBLE BLIND TREATMENT PHASE
     Dates: start: 20081119
  4. BLINDED MOMETASONE FUROATE COMP-MOME+ [Suspect]
     Indication: CHRONIC OBSTRUCTIVE PULMONARY DISEASE
     Dosage: DOUBLE BLIND TREATMENT PHASE
     Dates: start: 20081119
  5. BLINDED NO TREATMENT RECEIVED NOMED [Suspect]
     Indication: CHRONIC OBSTRUCTIVE PULMONARY DISEASE
     Dosage: DOUBLE BLIND TREATMENT PHASE
     Dates: start: 20081119
  6. ACETYLSALICYLIC ACID [Concomitant]
     Dosage: UNK
     Dates: start: 20081119
  7. AMBROXOL [Concomitant]
     Dosage: UNK
     Dates: start: 20081119

REACTIONS (2)
  - NEPHROLITHIASIS [None]
  - RENAL COLIC [None]
